FAERS Safety Report 16958756 (Version 1)
Quarter: 2019Q4

REPORT INFORMATION
  Report Type: Spontaneous
  Country: US (occurrence: US)
  Receive Date: 20191024
  Receipt Date: 20191024
  Transmission Date: 20200122
  Serious: Yes (Other)
  Sender: FDA-Public Use
  Company Number: US-PFIZER INC-2019458866

PATIENT
  Sex: Female

DRUGS (1)
  1. ADVIL [Suspect]
     Active Substance: IBUPROFEN
     Indication: DYSMENORRHOEA
     Dosage: UNK

REACTIONS (8)
  - Muscle spasms [Unknown]
  - Accidental overdose [Unknown]
  - Nausea [Unknown]
  - Mobility decreased [Unknown]
  - Loss of consciousness [Unknown]
  - Cold sweat [Unknown]
  - Panic reaction [Unknown]
  - Tremor [Unknown]
